FAERS Safety Report 4732837-3 (Version None)
Quarter: 2005Q3

REPORT INFORMATION
  Report Type: 
  Country: None (occurrence: None)
  Receive Date: 20050803
  Receipt Date: 20050630
  Transmission Date: 20060218
  Serious: Yes (Other)
  Sender: FDA-Public Use
  Company Number: 200516085GDDC

PATIENT
  Age: 51 Year
  Sex: Male

DRUGS (1)
  1. FLAGYL [Suspect]
     Indication: DRUG USE FOR UNKNOWN INDICATION
     Dosage: DOSE: UNK
     Dates: start: 20050616

REACTIONS (3)
  - DIPLOPIA [None]
  - MYASTHENIA GRAVIS [None]
  - VISUAL ACUITY REDUCED [None]
